FAERS Safety Report 9352561 (Version 7)
Quarter: 2014Q2

REPORT INFORMATION
  Report Type: Report from Study
  Country: DE (occurrence: DE)
  Receive Date: 20130618
  Receipt Date: 20140630
  Transmission Date: 20141212
  Serious: Yes (Hospitalization)
  Sender: FDA-Public Use
  Company Number: DE-ROCHE-1237716

PATIENT
  Age: 66 Year
  Sex: Female
  Weight: 73 kg

DRUGS (8)
  1. RIBAVIRIN [Suspect]
     Indication: CHRONIC HEPATITIS C
     Route: 048
     Dates: start: 20130207, end: 20130417
  2. RIBAVIRIN [Suspect]
     Route: 048
     Dates: start: 20130418, end: 20130515
  3. RIBAVIRIN [Suspect]
     Route: 048
     Dates: start: 20130516, end: 20130529
  4. RIBAVIRIN [Suspect]
     Route: 048
     Dates: start: 20130530, end: 20130626
  5. RIBAVIRIN [Suspect]
     Route: 048
     Dates: start: 20130627, end: 20130913
  6. PEG-INTERFERON ALFA 2A [Suspect]
     Indication: CHRONIC HEPATITIS C
     Route: 065
     Dates: start: 20130207, end: 20130919
  7. VICTRELIS [Suspect]
     Indication: CHRONIC HEPATITIS C
     Route: 065
     Dates: start: 20130307, end: 20130919
  8. L-THYROXIN [Concomitant]
     Indication: GOITRE

REACTIONS (3)
  - Anaemia [Recovered/Resolved]
  - Syncope [Recovered/Resolved]
  - Neutropenia [Recovered/Resolved]
